FAERS Safety Report 9708262 (Version 1)
Quarter: 2013Q4

REPORT INFORMATION
  Report Type: Spontaneous
  Country: GB (occurrence: GB)
  Receive Date: 20131125
  Receipt Date: 20131125
  Transmission Date: 20140711
  Serious: Yes (Hospitalization)
  Sender: FDA-Public Use
  Company Number: GB-PFIZER INC-2013330839

PATIENT
  Age: 66 Year
  Sex: Female

DRUGS (1)
  1. XALKORI [Suspect]
     Dosage: UNK
     Dates: end: 20131118

REACTIONS (3)
  - Renal impairment [Unknown]
  - Hypotension [Unknown]
  - Diarrhoea [Unknown]
